FAERS Safety Report 21861637 (Version 1)
Quarter: 2023Q1

REPORT INFORMATION
  Report Type: Spontaneous
  Country: US (occurrence: US)
  Receive Date: 20230113
  Receipt Date: 20230113
  Transmission Date: 20230417
  Serious: No
  Sender: FDA-Public Use
  Company Number: US-MYLANLABS-2022M1137437

PATIENT
  Sex: Female

DRUGS (1)
  1. XALATAN [Suspect]
     Active Substance: LATANOPROST
     Indication: Intraocular pressure test abnormal
     Dosage: 1 GTT DROPS, AM, (1 DROP EACH EYE EVERY MORNING)
     Route: 065

REACTIONS (2)
  - Product packaging quantity issue [Unknown]
  - Extra dose administered [Unknown]
